FAERS Safety Report 10500964 (Version 1)
Quarter: 2014Q4

REPORT INFORMATION
  Report Type: Spontaneous
  Country: DE (occurrence: DE)
  Receive Date: 20141007
  Receipt Date: 20141007
  Transmission Date: 20150528
  Serious: Yes (Other)
  Sender: FDA-Public Use
  Company Number: DE-ORION CORPORATION ORION PHARMA-ENTC2014-0356

PATIENT
  Age: 71 Year
  Sex: Male
  Weight: 78 kg

DRUGS (5)
  1. IBU [Concomitant]
     Active Substance: IBUPROFEN
     Route: 048
  2. LEVODOPA/CARBIDOPA/ENTACAPONE ORION [Suspect]
     Active Substance: CARBIDOPA\ENTACAPONE\LEVODOPA
     Indication: PARKINSON^S DISEASE
     Dosage: STRENGTH: 200/50/200 MG
     Route: 065
     Dates: start: 20140311, end: 20140312
  3. REQUIP [Concomitant]
     Active Substance: ROPINIROLE HYDROCHLORIDE
     Dosage: STRENGTH: 8 MG
     Route: 048
  4. METOPROLOL [Concomitant]
     Active Substance: METOPROLOL
     Dosage: STRENGTH: 47.5
     Route: 048
  5. L-THYROXINE [Concomitant]
     Active Substance: LEVOTHYROXINE
     Dosage: STRENGTH: 75
     Route: 048

REACTIONS (9)
  - Product quality issue [Unknown]
  - Defaecation urgency [Recovered/Resolved]
  - Fall [Recovered/Resolved]
  - Micturition urgency [Recovered/Resolved]
  - Motor dysfunction [None]
  - Dystonia [Recovered/Resolved]
  - Product substitution issue [Unknown]
  - Hypokinesia [Recovered/Resolved]
  - Bedridden [Recovered/Resolved]

NARRATIVE: CASE EVENT DATE: 201403
